FAERS Safety Report 18984689 (Version 1)
Quarter: 2021Q1

REPORT INFORMATION
  Report Type: Spontaneous
  Country: US (occurrence: US)
  Receive Date: 20210309
  Receipt Date: 20210309
  Transmission Date: 20210420
  Serious: No
  Sender: FDA-Public Use
  Company Number: US-CELLTRION INC.-2021US002207

PATIENT

DRUGS (4)
  1. CBD [Concomitant]
     Active Substance: CANNABIDIOL
  2. BACLOFEN. [Concomitant]
     Active Substance: BACLOFEN
  3. TRUXIMA [Suspect]
     Active Substance: RITUXIMAB-ABBS
     Indication: PRIMARY PROGRESSIVE MULTIPLE SCLEROSIS
     Dosage: UNK
     Dates: start: 20200624
  4. OCREVUS [Concomitant]
     Active Substance: OCRELIZUMAB

REACTIONS (4)
  - Musculoskeletal stiffness [Not Recovered/Not Resolved]
  - Condition aggravated [Not Recovered/Not Resolved]
  - Hypoaesthesia [Not Recovered/Not Resolved]
  - Off label use [Unknown]

NARRATIVE: CASE EVENT DATE: 202007
